FAERS Safety Report 8518062-9 (Version None)
Quarter: 2012Q3

REPORT INFORMATION
  Report Type: 
  Country: None (occurrence: None)
  Receive Date: 20120712
  Receipt Date: 20120712
  Transmission Date: 20120928
  Serious: Yes (Death, Life-Threatening, Hospitalization)
  Sender: FDA-Public Use
  Company Number: None

PATIENT
  Sex: Male
  Weight: 122.9248 kg

DRUGS (1)
  1. PRADAXA 75 MG BOEHRINGER INGELIN [Suspect]
     Indication: CEREBROVASCULAR ACCIDENT PROPHYLAXIS
     Dosage: 75 MG 2 TIMES DAILY PO
     Route: 048
     Dates: start: 20120114, end: 20120626

REACTIONS (4)
  - LARGE INTESTINE PERFORATION [None]
  - EPISTAXIS [None]
  - RENAL FAILURE [None]
  - GASTRIC ULCER [None]
